FAERS Safety Report 7860265 (Version 2)
Quarter: 2013Q2

REPORT INFORMATION
  Report Type: Report from Study
  Country: MX (occurrence: MX)
  Receive Date: 20110317
  Receipt Date: 20130528
  Transmission Date: 20140414
  Serious: Yes (Other)
  Sender: FDA-Public Use
  Company Number: PHHY2011MX18287

PATIENT
  Age: 66 Year
  Sex: Female

DRUGS (1)
  1. ACLASTA [Suspect]
     Indication: OSTEOPOROSIS
     Dosage: 5 MG/100 ML PER YEAR
     Route: 042
     Dates: start: 201007

REACTIONS (3)
  - Fall [Unknown]
  - Wrist fracture [Unknown]
  - Body temperature increased [Recovered/Resolved]
